FAERS Safety Report 11398918 (Version 1)
Quarter: 2015Q3

REPORT INFORMATION
  Report Type: Spontaneous
  Country: JP (occurrence: JP)
  Receive Date: 20150820
  Receipt Date: 20150820
  Transmission Date: 20151125
  Serious: Yes (Death)
  Sender: FDA-Public Use
  Company Number: JP-ROCHE-1622720

PATIENT
  Age: 75 Year
  Sex: Female
  Weight: 41 kg

DRUGS (8)
  1. PEMETREXED SODIUM HYDRATE [Concomitant]
     Active Substance: PEMETREXED
     Indication: LUNG ADENOCARCINOMA
     Dosage: COMPLETED TREATMENT CYCLE NUMBER: 2
     Route: 041
     Dates: start: 20150604, end: 20150716
  2. PANVITAN [Concomitant]
     Indication: PROPHYLAXIS
     Route: 048
     Dates: start: 20150525
  3. CARBOPLATIN. [Concomitant]
     Active Substance: CARBOPLATIN
     Indication: LUNG ADENOCARCINOMA
     Dosage: COMPLETED TREATMENT CYCLE NUMBER: 2
     Route: 041
     Dates: start: 20150604, end: 20150716
  4. DENOTAS [Concomitant]
     Active Substance: CALCIUM CARBONATE\CHOLECALCIFEROL\MAGNESIUM CARBONATE
     Indication: METASTASES TO BONE
     Route: 048
     Dates: start: 20150511
  5. ZOLPIDEM TARTRATE. [Concomitant]
     Active Substance: ZOLPIDEM TARTRATE
     Indication: INSOMNIA
     Route: 048
     Dates: start: 20150522
  6. CELECOX [Concomitant]
     Active Substance: CELECOXIB
     Indication: CANCER PAIN
     Route: 048
     Dates: start: 20150522
  7. SODIUM CHLORIDE. [Concomitant]
     Active Substance: SODIUM CHLORIDE
     Indication: HYPONATRAEMIA
     Route: 065
     Dates: start: 20150710
  8. AVASTIN [Suspect]
     Active Substance: BEVACIZUMAB
     Indication: LUNG ADENOCARCINOMA
     Dosage: TREATMENT LINE: 1 COMPLETED TREATMENT CYCLE NUMBER: 2
     Route: 041
     Dates: start: 20150604, end: 20150716

REACTIONS (2)
  - Shock haemorrhagic [Fatal]
  - Haemoptysis [Fatal]

NARRATIVE: CASE EVENT DATE: 20150718
